FAERS Safety Report 5950809-8 (Version None)
Quarter: 2008Q4

REPORT INFORMATION
  Report Type: 
  Country: None (occurrence: None)
  Receive Date: 20081022
  Receipt Date: 20080818
  Transmission Date: 20090506
  Serious: No
  Sender: FDA-Public Use
  Company Number: ALL1-2008-02328

PATIENT
  Age: 21 Year
  Sex: Male
  Weight: 65.8 kg

DRUGS (2)
  1. VYVANSE [Suspect]
     Indication: ATTENTION DEFICIT/HYPERACTIVITY DISORDER
     Dosage: 50 MG,ORAL; 30 MG,ORAL
     Route: 048
     Dates: start: 20080101, end: 20080801
  2. VYVANSE [Suspect]
     Indication: ATTENTION DEFICIT/HYPERACTIVITY DISORDER
     Dosage: 50 MG,ORAL; 30 MG,ORAL
     Route: 048
     Dates: start: 20080801

REACTIONS (4)
  - DECREASED APPETITE [None]
  - HYPERHIDROSIS [None]
  - SKIN ODOUR ABNORMAL [None]
  - WEIGHT DECREASED [None]
